FAERS Safety Report 5367893-5 (Version None)
Quarter: 2007Q2

REPORT INFORMATION
  Report Type: 
  Country: None (occurrence: None)
  Receive Date: 20070622
  Receipt Date: 20070614
  Transmission Date: 20071010
  Serious: Yes (Other)
  Sender: FDA-Public Use
  Company Number: ES-ROXANE LABORATORIES, INC-2007-DE-03589GD

PATIENT

DRUGS (1)
  1. MORPHINE [Suspect]

REACTIONS (1)
  - CHOLESTASIS [None]
